FAERS Safety Report 14521371 (Version 2)
Quarter: 2018Q1

REPORT INFORMATION
  Report Type: Spontaneous
  Country: US (occurrence: US)
  Receive Date: 20180212
  Receipt Date: 20180312
  Transmission Date: 20180509
  Serious: No
  Sender: FDA-Public Use
  Company Number: PHEH2018US005309

PATIENT
  Age: 3 Year
  Sex: Male
  Weight: 15 kg

DRUGS (1)
  1. CIPRODEX [Suspect]
     Active Substance: CIPROFLOXACIN HYDROCHLORIDE\DEXAMETHASONE
     Indication: OTORRHOEA
     Dosage: UNK
     Route: 001
     Dates: start: 20180101, end: 20180104

REACTIONS (2)
  - Drug ineffective [Unknown]
  - Ear pain [Unknown]

NARRATIVE: CASE EVENT DATE: 20180104
